FAERS Safety Report 5288114-8 (Version None)
Quarter: 2007Q2

REPORT INFORMATION
  Report Type: 
  Country: None (occurrence: None)
  Receive Date: 20070405
  Receipt Date: 20070330
  Transmission Date: 20071010
  Serious: Yes (Other)
  Sender: FDA-Public Use
  Company Number: 2006UW08080

PATIENT
  Age: 19964 Day
  Sex: Female
  Weight: 83.6 kg

DRUGS (5)
  1. SEROQUEL [Suspect]
     Indication: ANXIETY
     Route: 048
     Dates: start: 20010104, end: 20060228
  2. SEROQUEL [Suspect]
     Indication: BIPOLAR I DISORDER
     Route: 048
     Dates: start: 20010104, end: 20060228
  3. SEROQUEL [Suspect]
     Indication: POST-TRAUMATIC STRESS DISORDER
     Route: 048
     Dates: start: 20010104, end: 20060228
  4. ZYPREXA [Concomitant]
     Dates: start: 19991201, end: 20001001
  5. ZOLOFT [Concomitant]
     Dates: start: 20000501

REACTIONS (2)
  - DIABETES MELLITUS [None]
  - PANCREATITIS [None]
